FAERS Safety Report 7531734-8 (Version None)
Quarter: 2011Q2

REPORT INFORMATION
  Report Type: 
  Country: None (occurrence: None)
  Receive Date: 20110608
  Receipt Date: 20110525
  Transmission Date: 20111010
  Serious: Yes (Other)
  Sender: FDA-Public Use
  Company Number: US-BAYER-201031732NA

PATIENT
  Age: 19 Year
  Sex: Female

DRUGS (1)
  1. YASMIN [Suspect]
     Indication: PRODUCT USED FOR UNKNOWN INDICATION
     Route: 048
     Dates: start: 20090101, end: 20090801

REACTIONS (3)
  - DEEP VEIN THROMBOSIS [None]
  - HEADACHE [None]
  - THROMBOSIS [None]
